FAERS Safety Report 5397930-3 (Version None)
Quarter: 2007Q3

REPORT INFORMATION
  Report Type: 
  Country: None (occurrence: None)
  Receive Date: 20070724
  Receipt Date: 20070710
  Transmission Date: 20080115
  Serious: Yes (Other)
  Sender: FDA-Public Use
  Company Number: 26810

PATIENT
  Age: 65 Year
  Sex: Female

DRUGS (2)
  1. NIASPAN [Suspect]
     Dosage: 500 MG QHS PO
     Route: 048
  2. TRICOR [Concomitant]

REACTIONS (4)
  - HALLUCINATION [None]
  - HEADACHE [None]
  - NAUSEA [None]
  - SWOLLEN TONGUE [None]
